FAERS Safety Report 9646045 (Version 1)
Quarter: 2013Q4

REPORT INFORMATION
  Report Type: Spontaneous
  Country: US (occurrence: None)
  Receive Date: 20131023
  Receipt Date: 20131023
  Transmission Date: 20140711
  Serious: Yes (Other)
  Sender: FDA-Public Use
  Company Number: 2013-US-001884

PATIENT
  Age: 36 Year
  Sex: Female

DRUGS (8)
  1. XYREM (SODIUM OXYBATE) ORAL SOLUTION, 500MG/ML [Suspect]
     Indication: NARCOLEPSY
     Route: 048
     Dates: start: 201101, end: 201101
  2. XYREM (SODIUM OXYBATE) ORAL SOLUTION, 500MG/ML [Suspect]
     Indication: CATAPLEXY
     Route: 048
     Dates: start: 201101, end: 201101
  3. LEVOTHYROXINE (LEVOTHYROXINE SODIUME) [Concomitant]
  4. IVIG (IMMUNOGLOBULIN HUMAN NORMAL) [Concomitant]
  5. CYMBALTA (DULOXETINE HYDROCHLORIDE) [Concomitant]
  6. LYRICA (PREGABALIN) [Concomitant]
  7. INDERAL (PROPRANOLOL HYDROCHLORIDE) [Concomitant]
  8. KLONOPIN (CLONAZEPAM) (TABLETS) [Concomitant]

REACTIONS (4)
  - Autoimmune thyroiditis [None]
  - Insomnia [None]
  - Euphoric mood [None]
  - Hunger [None]
